FAERS Safety Report 4565230-7 (Version None)
Quarter: 2005Q1

REPORT INFORMATION
  Report Type: 
  Country: None (occurrence: None)
  Receive Date: 20050131
  Receipt Date: 20050120
  Transmission Date: 20050727
  Serious: Yes (Other)
  Sender: FDA-Public Use
  Company Number: US-GLAXOSMITHKLINE-A0541497A

PATIENT
  Age: 59 Year
  Sex: Male
  Weight: 70.5 kg

DRUGS (6)
  1. COMMIT [Suspect]
     Indication: SMOKING CESSATION THERAPY
     Route: 002
     Dates: start: 20050119, end: 20050119
  2. DOXAZOSIN MESYLATE [Concomitant]
     Indication: HYPERTENSION
     Route: 048
  3. ACCOLATE [Concomitant]
     Indication: HYPERSENSITIVITY
     Route: 048
  4. BUPROPION HCL [Concomitant]
     Indication: DRUG USE FOR UNKNOWN INDICATION
     Route: 048
  5. FLOVENT [Concomitant]
     Indication: ASTHMA
     Route: 055
  6. COMBIVENT [Concomitant]
     Indication: ASTHMA
     Route: 055

REACTIONS (7)
  - ASTHENIA [None]
  - CYANOSIS [None]
  - DIAPHRAGMATIC PARALYSIS [None]
  - DYSPNOEA [None]
  - HICCUPS [None]
  - LOSS OF CONSCIOUSNESS [None]
  - NERVOUSNESS [None]
